FAERS Safety Report 15854571 (Version 3)
Quarter: 2019Q1

REPORT INFORMATION
  Report Type: Spontaneous
  Country: US (occurrence: US)
  Receive Date: 20190122
  Receipt Date: 20190306
  Transmission Date: 20190417
  Serious: Yes (Other)
  Sender: FDA-Public Use
  Company Number: US-BAYER-2019-014262

PATIENT
  Sex: Female

DRUGS (1)
  1. SKYLA [Suspect]
     Active Substance: LEVONORGESTREL
     Indication: CONTRACEPTION
     Dosage: 14 MCG/24HR, CONT
     Route: 015
     Dates: start: 201710, end: 20190102

REACTIONS (6)
  - Haemorrhage in pregnancy [None]
  - Dyspareunia [None]
  - Ectopic pregnancy with contraceptive device [None]
  - Drug ineffective [None]
  - Ruptured ectopic pregnancy [None]
  - Abdominal pain lower [None]
